FAERS Safety Report 5900909-3 (Version None)
Quarter: 2008Q3

REPORT INFORMATION
  Report Type: 
  Country: None (occurrence: None)
  Receive Date: 20080929
  Receipt Date: 20080922
  Transmission Date: 20090109
  Serious: Yes (Death, Hospitalization)
  Sender: FDA-Public Use
  Company Number: PHHY2008SE22095

PATIENT
  Sex: Female

DRUGS (7)
  1. ZOMETA [Suspect]
     Dosage: UNK
     Dates: start: 20080124, end: 20080522
  2. SUTENT [Suspect]
     Dosage: 50 MG ONCE
     Dates: start: 20071203
  3. SUTENT [Suspect]
     Dosage: 25 MG ONCE
     Dates: end: 20080530
  4. LEVOTHYROXINE SODIUM [Concomitant]
     Dosage: 75 MG
     Route: 048
  5. FLUDENT [Concomitant]
     Dosage: 0.75 MG
  6. LOSEC MUPS [Concomitant]
     Dosage: 20 MG
     Route: 048
  7. ZOPOCLONE [Concomitant]
     Dosage: 5 MG
     Route: 048

REACTIONS (13)
  - ACUTE HEPATIC FAILURE [None]
  - ADVERSE DRUG REACTION [None]
  - ALANINE AMINOTRANSFERASE INCREASED [None]
  - ASPARTATE AMINOTRANSFERASE INCREASED [None]
  - BLOOD BILIRUBIN INCREASED [None]
  - BLOOD CREATININE INCREASED [None]
  - BLOOD PRESSURE DECREASED [None]
  - CHOLELITHIASIS [None]
  - FATIGUE [None]
  - HEPATIC NECROSIS [None]
  - ORAL DISCOMFORT [None]
  - RENAL FAILURE ACUTE [None]
  - WHITE BLOOD CELL DISORDER [None]
